FAERS Safety Report 6614259-3 (Version None)
Quarter: 2010Q1

REPORT INFORMATION
  Report Type: 
  Country: None (occurrence: None)
  Receive Date: 20100303
  Receipt Date: 20100303
  Transmission Date: 20100710
  Serious: Yes (Other)
  Sender: FDA-Public Use
  Company Number: None

PATIENT
  Sex: Female
  Weight: 83.9154 kg

DRUGS (1)
  1. TRAVATAN Z [Suspect]
     Indication: GLAUCOMA
     Dosage: 1 DROP IN EYE EACH NIGHT EVERY DAY OTHER
     Route: 048
     Dates: start: 20090501, end: 20100228

REACTIONS (5)
  - DRY EYE [None]
  - EYE IRRITATION [None]
  - EYE SWELLING [None]
  - FOREIGN BODY SENSATION IN EYES [None]
  - OCULAR HYPERAEMIA [None]
